FAERS Safety Report 10777719 (Version 1)
Quarter: 2015Q1

REPORT INFORMATION
  Report Type: Spontaneous
  Country: US (occurrence: US)
  Receive Date: 20150209
  Receipt Date: 20150209
  Transmission Date: 20150721
  Serious: No
  Sender: FDA-Public Use
  Company Number: US-GLAXOSMITHKLINE-US2014GSK049407

PATIENT
  Sex: Female
  Weight: 79.37 kg

DRUGS (10)
  1. FENTANYL. [Concomitant]
     Active Substance: FENTANYL
  2. TRAMADOL HYDROCHLORIDE. [Concomitant]
     Active Substance: TRAMADOL HYDROCHLORIDE
  3. CALCIUM+D3 [Concomitant]
  4. DILAUDID-HP [Concomitant]
     Active Substance: HYDROMORPHONE HYDROCHLORIDE
  5. SENNA-S [Concomitant]
     Active Substance: DOCUSATE SODIUM\SENNOSIDES
  6. ZOMETA [Concomitant]
     Active Substance: ZOLEDRONIC ACID
  7. VITAMIN B-6 [Concomitant]
     Active Substance: PYRIDOXINE
  8. COLACE [Concomitant]
     Active Substance: DOCUSATE SODIUM
  9. TYKERB [Suspect]
     Active Substance: LAPATINIB DITOSYLATE
     Indication: BREAST CANCER FEMALE
     Dosage: 1250 MG, QD
     Route: 048
     Dates: start: 20141127
  10. MULTIVITAMINS [Concomitant]
     Active Substance: VITAMINS

REACTIONS (3)
  - Nausea [Unknown]
  - Dehydration [Unknown]
  - Blood potassium decreased [Unknown]
